FAERS Safety Report 17091574 (Version 1)
Quarter: 2019Q4

REPORT INFORMATION
  Report Type: Spontaneous
  Country: US (occurrence: US)
  Receive Date: 20191031
  Receipt Date: 20191031
  Transmission Date: 20200122
  Serious: No
  Sender: FDA-Public Use
  Company Number: None

PATIENT
  Age: 81 Year
  Sex: Male
  Weight: 89.81 kg

DRUGS (1)
  1. LIDOCAINE. [Suspect]
     Active Substance: LIDOCAINE
     Indication: ECHOCARDIOGRAM
     Route: 061
     Dates: start: 20190722, end: 20190722

REACTIONS (3)
  - Wheezing [None]
  - Dyspnoea [None]
  - Bronchospasm [None]

NARRATIVE: CASE EVENT DATE: 20190722
